FAERS Safety Report 7016480-1 (Version None)
Quarter: 2010Q3

REPORT INFORMATION
  Report Type: 
  Country: None (occurrence: None)
  Receive Date: 20100927
  Receipt Date: 20100923
  Transmission Date: 20110219
  Serious: Yes (Death)
  Sender: FDA-Public Use
  Company Number: A0782844A

PATIENT
  Age: 71 Year
  Sex: Female

DRUGS (5)
  1. AVANDIA [Suspect]
     Indication: DIABETES MELLITUS
     Dosage: 8MG PER DAY
     Route: 048
     Dates: start: 20020501, end: 20061123
  2. NORVASC [Concomitant]
  3. GLUCOTROL [Concomitant]
  4. PRINIVIL [Concomitant]
  5. LOPID [Concomitant]

REACTIONS (1)
  - MYOCARDIAL INFARCTION [None]
